FAERS Safety Report 19358498 (Version 1)
Quarter: 2021Q2

REPORT INFORMATION
  Report Type: Spontaneous
  Country: US (occurrence: US)
  Receive Date: 20210601
  Receipt Date: 20210601
  Transmission Date: 20210717
  Serious: Yes (Hospitalization, Other)
  Sender: FDA-Public Use
  Company Number: US-CELLTRION INC.-2021US007219

PATIENT

DRUGS (2)
  1. METHOTREXATE. [Suspect]
     Active Substance: METHOTREXATE
     Indication: CROHN^S DISEASE
     Dosage: 10 MG, ONCE WEEKLY
     Route: 048
  2. INFLIXIMAB (UNKNOWN) [Suspect]
     Active Substance: INFLIXIMAB
     Indication: CROHN^S DISEASE
     Dosage: 400 MG, EVERY 8 WEEKS
     Route: 042

REACTIONS (8)
  - Acute hepatic failure [Unknown]
  - Pancytopenia [Recovered/Resolved]
  - Autoimmune hepatitis [Unknown]
  - Cholestatic liver injury [Unknown]
  - Acute kidney injury [Recovered/Resolved]
  - Hepatic necrosis [Unknown]
  - Hepatocellular injury [Unknown]
  - Pyrexia [Unknown]
